FAERS Safety Report 8964776 (Version 2)
Quarter: 2013Q1

REPORT INFORMATION
  Report Type: Spontaneous
  Country: JP (occurrence: JP)
  Receive Date: 20121213
  Receipt Date: 20130319
  Transmission Date: 20140127
  Serious: Yes (Hospitalization, Other)
  Sender: FDA-Public Use
  Company Number: JP-ROCHE-1150167

PATIENT
  Age: 69 None
  Sex: Male
  Weight: 72 kg

DRUGS (15)
  1. ACTEMRA [Suspect]
     Indication: RHEUMATOID ARTHRITIS
     Route: 041
     Dates: start: 20120823, end: 20121017
  2. AZULFIDINE-EN [Suspect]
     Indication: RHEUMATOID ARTHRITIS
     Route: 048
     Dates: end: 20120811
  3. PREDONINE [Suspect]
     Indication: RHEUMATOID ARTHRITIS
     Route: 048
  4. ISCOTIN [Concomitant]
     Indication: ANTIBIOTIC PROPHYLAXIS
     Dosage: DOSAGE IS UNCERTAIN.
     Route: 048
     Dates: start: 20120706
  5. CELECOX [Concomitant]
     Indication: RHEUMATOID ARTHRITIS
     Route: 048
  6. MUCOSTA [Concomitant]
     Indication: GASTRITIS PROPHYLAXIS
     Route: 048
  7. MUCOSTA [Concomitant]
     Indication: GASTRITIS PROPHYLAXIS
     Dosage: AT ONE/TIME PAIN
     Route: 048
  8. PYDOXAL [Concomitant]
     Route: 048
  9. THEO-DUR [Concomitant]
     Indication: ASTHMA
     Route: 048
  10. LOXONIN [Concomitant]
     Indication: RHEUMATOID ARTHRITIS
     Dosage: AT THE PAIN
     Route: 048
  11. MYSLEE [Concomitant]
     Dosage: AT THE SLEEP LOSS
     Route: 048
  12. ADETPHOS KOWA [Concomitant]
     Route: 048
  13. KARY UNI [Concomitant]
     Dosage: OCULUS UTERQUE
     Route: 047
  14. LEVOFLOXACIN HYDRATE [Concomitant]
     Dosage: OCULUS UTERQUE AND MORNING
     Route: 047
  15. FLUOROMETHOLONE [Concomitant]
     Dosage: OCULUS UTERQUE AND MORNING
     Route: 047

REACTIONS (8)
  - Septic shock [Recovered/Resolved]
  - Enterocolitis [Recovered/Resolved]
  - Pneumonia [Recovered/Resolved]
  - Renal impairment [Recovered/Resolved]
  - Sinus bradycardia [Not Recovered/Not Resolved]
  - Delirium [Recovered/Resolved]
  - Cardiac valve disease [Not Recovered/Not Resolved]
  - Dehydration [Recovered/Resolved]
